FAERS Safety Report 23139657 (Version 1)
Quarter: 2023Q4

REPORT INFORMATION
  Report Type: Spontaneous
  Country: US (occurrence: None)
  Receive Date: 20231102
  Receipt Date: 20231102
  Transmission Date: 20240110
  Serious: No
  Sender: FDA-Public Use
  Company Number: None

PATIENT
  Age: 61 Year
  Sex: Female
  Weight: 90.45 kg

DRUGS (19)
  1. CYCLOBENZAPRINE HYDROCHLORIDE [Suspect]
     Active Substance: CYCLOBENZAPRINE HYDROCHLORIDE
     Indication: Arthralgia
     Dosage: OTHER QUANTITY : 1 TABLET(S);?FREQUENCY : TWICE A DAY;?
     Route: 048
     Dates: start: 20231004, end: 20231025
  2. CYCLOBENZAPRINE HYDROCHLORIDE [Suspect]
     Active Substance: CYCLOBENZAPRINE HYDROCHLORIDE
     Indication: Neck pain
  3. BERBERINE [Concomitant]
     Active Substance: BERBERINE
  4. Vitamins D [Concomitant]
  5. ASCORBIC ACID [Concomitant]
     Active Substance: ASCORBIC ACID
  6. Vitamins B-12 [Concomitant]
  7. Vitamins E [Concomitant]
  8. OMEGA 3 [Concomitant]
     Active Substance: CAPSAICIN
  9. COCONUT OIL [Concomitant]
     Active Substance: COCONUT OIL
  10. CRANBERRY [Concomitant]
     Active Substance: CRANBERRY
  11. tasty cherry extract [Concomitant]
  12. beet root powder [Concomitant]
  13. HERBALS\TURMERIC [Concomitant]
     Active Substance: HERBALS\TURMERIC
  14. GINGER [Concomitant]
     Active Substance: GINGER
  15. OMEGA-3 FATTY ACIDS [Concomitant]
     Active Substance: OMEGA-3 FATTY ACIDS
  16. APPLE CIDER VINEGAR [Concomitant]
     Active Substance: APPLE CIDER VINEGAR
  17. GARLIC [Concomitant]
     Active Substance: GARLIC
  18. HONEY [Concomitant]
     Active Substance: HONEY
  19. CINNAMON [Concomitant]
     Active Substance: CINNAMON

REACTIONS (8)
  - Diarrhoea [None]
  - Nightmare [None]
  - Hallucination [None]
  - Somnolence [None]
  - Somnolence [None]
  - Therapy cessation [None]
  - Neck pain [None]
  - Arthralgia [None]

NARRATIVE: CASE EVENT DATE: 20231028
